FAERS Safety Report 5517254-0 (Version None)
Quarter: 2007Q4

REPORT INFORMATION
  Report Type: 
  Country: None (occurrence: None)
  Receive Date: 20071114
  Receipt Date: 20070919
  Transmission Date: 20080405
  Serious: No
  Sender: FDA-Public Use
  Company Number: A0682571A

PATIENT
  Age: 55 Year
  Sex: Male

DRUGS (1)
  1. COMMIT [Suspect]
     Dates: end: 20070912

REACTIONS (1)
  - ORAL DISCOMFORT [None]
